FAERS Safety Report 11048696 (Version 1)
Quarter: 2015Q2

REPORT INFORMATION
  Report Type: Spontaneous
  Country: US (occurrence: US)
  Receive Date: 20150420
  Receipt Date: 20150420
  Transmission Date: 20150821
  Serious: Yes (Other)
  Sender: FDA-Public Use
  Company Number: US-WATSON-2015-08085

PATIENT

DRUGS (1)
  1. METHYLPHENIDATE HCL ER (WATSON LABORATORIES) [Suspect]
     Active Substance: METHYLPHENIDATE HYDROCHLORIDE
     Indication: ATTENTION DEFICIT/HYPERACTIVITY DISORDER
     Route: 065

REACTIONS (4)
  - Nightmare [Unknown]
  - Panic attack [Unknown]
  - Visual impairment [Unknown]
  - Hallucinations, mixed [Unknown]
